FAERS Safety Report 13520273 (Version 1)
Quarter: 2017Q2

REPORT INFORMATION
  Report Type: Spontaneous
  Country: GB (occurrence: GB)
  Receive Date: 20170507
  Receipt Date: 20170507
  Transmission Date: 20170830
  Serious: Yes (Other)
  Sender: FDA-Public Use
  Company Number: GB-TEVA-763883ACC

PATIENT
  Age: 31 Year
  Sex: Male
  Weight: 143.32 kg

DRUGS (2)
  1. TEGRETOL XR [Interacting]
     Active Substance: CARBAMAZEPINE
  2. CLARITHROMYCIN. [Suspect]
     Active Substance: CLARITHROMYCIN
     Indication: PYREXIA
     Route: 048

REACTIONS (2)
  - Drug interaction [Unknown]
  - Condition aggravated [Unknown]
